FAERS Safety Report 7703143-X (Version None)
Quarter: 2011Q3

REPORT INFORMATION
  Report Type: 
  Country: None (occurrence: None)
  Receive Date: 20110823
  Receipt Date: 20110815
  Transmission Date: 20111222
  Serious: Yes (Other)
  Sender: FDA-Public Use
  Company Number: US-US-EMD SERONO, INC.-7077452

PATIENT
  Sex: Female
  Weight: 59 kg

DRUGS (3)
  1. INTERFERON THERAPIES [Concomitant]
     Indication: HEPATITIS C
  2. REBIF [Suspect]
     Dates: end: 20110708
  3. REBIF [Suspect]
     Indication: MULTIPLE SCLEROSIS
     Dates: start: 20110625

REACTIONS (4)
  - HEPATITIS C [None]
  - FALL [None]
  - HAND FRACTURE [None]
  - DEPRESSION [None]
